FAERS Safety Report 4985909-2 (Version None)
Quarter: 2006Q2

REPORT INFORMATION
  Report Type: 
  Country: None (occurrence: None)
  Receive Date: 20060419
  Receipt Date: 20060406
  Transmission Date: 20061013
  Serious: Yes (Death, Disabling)
  Sender: FDA-Public Use
  Company Number: FR200602001448

PATIENT
  Age: 74 Year
  Sex: Male
  Weight: 60 kg

DRUGS (4)
  1. GEMZAR [Suspect]
     Indication: PANCREATIC CARCINOMA METASTATIC
     Dosage: 1000 MG/M2, OTHER, INTRAVENOUS
     Route: 042
     Dates: start: 20041026, end: 20060104
  2. CREON [Concomitant]
  3. PREVISCAN (FLUINDIONE) [Concomitant]
  4. MORPHINE SULFATE [Concomitant]

REACTIONS (5)
  - COMA HEPATIC [None]
  - DRUG TOXICITY [None]
  - INSOMNIA [None]
  - MALIGNANT NEOPLASM PROGRESSION [None]
  - PERIPHERAL SENSORY NEUROPATHY [None]
